FAERS Safety Report 13825711 (Version 2)
Quarter: 2017Q4

REPORT INFORMATION
  Report Type: Report from Study
  Country: US (occurrence: US)
  Receive Date: 20170802
  Receipt Date: 20171016
  Transmission Date: 20180320
  Serious: Yes (Other)
  Sender: FDA-Public Use
  Company Number: US-INCYTE CORPORATION-2017IN006017

PATIENT

DRUGS (1)
  1. JAKAFI [Suspect]
     Active Substance: RUXOLITINIB
     Indication: POLYCYTHAEMIA VERA
     Dosage: NOT SPECIFIED
     Route: 048

REACTIONS (7)
  - Haemoglobin increased [Unknown]
  - Platelet count increased [Unknown]
  - Pruritus [Unknown]
  - Haematocrit increased [Unknown]
  - Haematotoxicity [Unknown]
  - White blood cell count increased [Unknown]
  - Acute myeloid leukaemia [Unknown]
